FAERS Safety Report 9031848 (Version 1)
Quarter: 2013Q1

REPORT INFORMATION
  Report Type: Spontaneous
  Country: CH (occurrence: CH)
  Receive Date: 20130124
  Receipt Date: 20130124
  Transmission Date: 20140127
  Serious: Yes (Hospitalization)
  Sender: FDA-Public Use
  Company Number: CH-BAYER-2013-005995

PATIENT
  Age: 56 Year
  Sex: Male
  Weight: 85 kg

DRUGS (6)
  1. ASPIRIN CARDIO [Suspect]
     Dosage: 100 MG, QD
     Dates: start: 201212
  2. SINTROM [Interacting]
     Indication: HEART VALVE REPLACEMENT
     Dosage: UNK
     Dates: start: 20121224, end: 20130103
  3. CORDARONE [Concomitant]
     Dosage: 200 MG, QD
     Route: 048
     Dates: start: 201212
  4. SORTIS [Concomitant]
     Dosage: 40 MG, QD
     Route: 048
     Dates: start: 201212
  5. EPRIL [Concomitant]
     Dosage: 5 MG, BID
     Route: 048
     Dates: start: 201212
  6. NEXIUM [Concomitant]
     Dosage: 40 MG, QD
     Route: 048

REACTIONS (4)
  - Pericardial haemorrhage [Recovered/Resolved]
  - Pleural effusion [Recovered/Resolved]
  - Oedema peripheral [Unknown]
  - Weight increased [Unknown]
